FAERS Safety Report 25700600 (Version 2)
Quarter: 2025Q3

REPORT INFORMATION
  Report Type: Spontaneous
  Country: EU (occurrence: EU)
  Receive Date: 20250819
  Receipt Date: 20250827
  Transmission Date: 20251020
  Serious: Yes (Hospitalization, Other)
  Sender: HIKMA
  Company Number: None

PATIENT
  Age: 95 Year
  Sex: Male

DRUGS (12)
  1. CASPOFUNGIN ACETATE [Suspect]
     Active Substance: CASPOFUNGIN ACETATE
     Indication: Product used for unknown indication
     Dosage: 50 MILLIGRAM, QD (100ML OF 0.9% NACL. RECONSTITUTE WITH 10ML OF WATER FOR INFUSION OVER 1 HOUR)
     Route: 042
     Dates: start: 20250726, end: 20250730
  2. CEFAZOLIN [Suspect]
     Active Substance: CEFAZOLIN
     Indication: Staphylococcal infection
     Dosage: 2 GRAM, Q8H (100ML NACL 0,9%. RECONSTITUTE WITH 20ML AQUA)
     Route: 042
     Dates: start: 20250726, end: 20250730
  3. ATORVASTATIN CALCIUM [Concomitant]
     Active Substance: ATORVASTATIN CALCIUM
     Indication: Product used for unknown indication
     Dosage: 20 MILLIGRAM, QD (0-0-1-0)
     Route: 065
  4. ELIQUIS [Concomitant]
     Active Substance: APIXABAN
     Indication: Product used for unknown indication
     Route: 065
  5. RIFAMPIN [Concomitant]
     Active Substance: RIFAMPIN
     Indication: Product used for unknown indication
     Route: 048
  6. LOSARTAN [Concomitant]
     Active Substance: LOSARTAN
     Indication: Product used for unknown indication
     Dosage: 1000 MILLIGRAM, QD (1-0-0-0)
     Route: 065
  7. DIPYRONE [Concomitant]
     Active Substance: DIPYRONE
     Indication: Product used for unknown indication
     Route: 065
  8. NITRENDIPINE [Concomitant]
     Active Substance: NITRENDIPINE
     Indication: Product used for unknown indication
     Dosage: 20 MILLIGRAM, QD (1-0-0-0)
     Route: 065
  9. PANTOPRAZOLE SODIUM [Concomitant]
     Active Substance: PANTOPRAZOLE SODIUM
     Indication: Product used for unknown indication
     Dosage: 20 MILLIGRAM, QD (0-0-1-0)
     Route: 065
  10. SODIUM CHLORIDE [Concomitant]
     Active Substance: SODIUM CHLORIDE
     Indication: Product used for unknown indication
     Route: 065
  11. TERAZOSIN [Concomitant]
     Active Substance: TERAZOSIN HYDROCHLORIDE
     Indication: Product used for unknown indication
     Dosage: 2 MILLIGRAM, QD (0-0-1-0)
  12. TORSEMIDE [Concomitant]
     Active Substance: TORSEMIDE
     Indication: Product used for unknown indication
     Dosage: 10 MILLIGRAM, QD (1-0-0-0)
     Route: 065

REACTIONS (5)
  - Diarrhoea [Unknown]
  - Faeces discoloured [Unknown]
  - Cardiovascular disorder [Unknown]
  - Epistaxis [Unknown]
  - Dehydration [Unknown]

NARRATIVE: CASE EVENT DATE: 20250701
